FAERS Safety Report 8021276-8 (Version None)
Quarter: 2012Q1

REPORT INFORMATION
  Report Type: 
  Country: None (occurrence: None)
  Receive Date: 20120104
  Receipt Date: 20111222
  Transmission Date: 20120608
  Serious: Yes (Hospitalization, Other)
  Sender: FDA-Public Use
  Company Number: US-BAYER-2011-083017

PATIENT
  Sex: Female
  Weight: 91 kg

DRUGS (2)
  1. TRI-SPRINTEC [Concomitant]
     Dosage: UNK
     Dates: start: 20081201, end: 20110501
  2. YAZ [Suspect]
     Dosage: UNK
     Dates: start: 20070101, end: 20080101

REACTIONS (4)
  - CHOLELITHIASIS [None]
  - INJURY [None]
  - EMOTIONAL DISTRESS [None]
  - GALLBLADDER DISORDER [None]
